FAERS Safety Report 4374557-3 (Version None)
Quarter: 2004Q2

REPORT INFORMATION
  Report Type: 
  Country: None (occurrence: None)
  Receive Date: 20040609
  Receipt Date: 20040512
  Transmission Date: 20050107
  Serious: Yes (Death, Hospitalization)
  Sender: FDA-Public Use
  Company Number: US-MERCK-0405USA01948B1

PATIENT
  Sex: Male
  Weight: 1 kg

DRUGS (2)
  1. BETAMETHASONE [Concomitant]
     Indication: PREMATURE LABOUR
  2. INDOCIN [Suspect]
     Indication: PREMATURE LABOUR

REACTIONS (2)
  - PERSISTENT FOETAL CIRCULATION [None]
  - PREMATURE BABY [None]
